FAERS Safety Report 8022610-5 (Version None)
Quarter: 2012Q1

REPORT INFORMATION
  Report Type: 
  Country: None (occurrence: None)
  Receive Date: 20120104
  Receipt Date: 20111117
  Transmission Date: 20120608
  Serious: Yes (Other)
  Sender: FDA-Public Use
  Company Number: JP-GLAXOSMITHKLINE-B0763901A

PATIENT
  Sex: Male

DRUGS (9)
  1. PAXIL [Suspect]
     Indication: DEPRESSION
     Dosage: 10MG PER DAY
     Route: 048
     Dates: start: 20110826, end: 20110908
  2. PAXIL [Suspect]
     Dosage: 20MG PER DAY
     Route: 048
     Dates: start: 20110909, end: 20111007
  3. LEXOTAN [Suspect]
     Dosage: 1MG PER DAY
     Route: 048
     Dates: start: 20110909
  4. ZOLPIDEM [Concomitant]
     Indication: INSOMNIA
     Dosage: 10MG PER DAY
     Route: 048
     Dates: start: 20110826, end: 20111110
  5. LEXOTAN [Suspect]
     Indication: ANXIETY
     Dosage: 3MG PER DAY
     Route: 048
     Dates: start: 20110826, end: 20110908
  6. ROHYPNOL [Suspect]
     Indication: INSOMNIA
     Dosage: 1MG PER DAY
     Route: 048
     Dates: start: 20110909, end: 20111202
  7. GASMOTIN [Concomitant]
     Indication: ABDOMINAL DISCOMFORT
     Dosage: 3IUAX PER DAY
     Route: 048
  8. PAXIL [Suspect]
     Dosage: 30MG PER DAY
     Route: 048
     Dates: start: 20111008, end: 20111110
  9. PAXIL [Suspect]
     Dosage: 10MG PER DAY
     Route: 048
     Dates: start: 20111111, end: 20111128

REACTIONS (7)
  - IMPULSE-CONTROL DISORDER [None]
  - OBSESSIVE THOUGHTS [None]
  - MANIA [None]
  - HYPOMANIA [None]
  - LOGORRHOEA [None]
  - HYPERKINESIA [None]
  - INSOMNIA [None]
